FAERS Safety Report 20770370 (Version 2)
Quarter: 2022Q2

REPORT INFORMATION
  Report Type: Spontaneous
  Country: TW (occurrence: TW)
  Receive Date: 20220429
  Receipt Date: 20220513
  Transmission Date: 20220720
  Serious: Yes (Hospitalization, Other)
  Sender: FDA-Public Use
  Company Number: TW-TAKEDA-2022TEU002898

PATIENT

DRUGS (2)
  1. ZEJULA [Suspect]
     Active Substance: NIRAPARIB
     Indication: Ovarian cancer
     Dosage: 200 MG, QD
     Route: 048
     Dates: start: 20220211, end: 20220213
  2. ZEJULA [Suspect]
     Active Substance: NIRAPARIB
     Dosage: 100 MG, QD
     Route: 048
     Dates: start: 20220214, end: 20220216

REACTIONS (13)
  - Angina pectoris [Not Recovered/Not Resolved]
  - Renal haemorrhage [Recovering/Resolving]
  - Hypertension [Not Recovered/Not Resolved]
  - Chest discomfort [Recovered/Resolved]
  - Hydronephrosis [Unknown]
  - Flank pain [Unknown]
  - Haematuria [Unknown]
  - Renal mass [Unknown]
  - Pelvic haematoma [Unknown]
  - Renal haematoma [Unknown]
  - Palpitations [Recovered/Resolved]
  - Headache [Recovered/Resolved]
  - Dyspnoea [Not Recovered/Not Resolved]

NARRATIVE: CASE EVENT DATE: 20220211
